FAERS Safety Report 10231063 (Version 1)
Quarter: 2014Q2

REPORT INFORMATION
  Report Type: Spontaneous
  Country: US (occurrence: US)
  Receive Date: 20140611
  Receipt Date: 20140611
  Transmission Date: 20141212
  Serious: No
  Sender: FDA-Public Use
  Company Number: US-PFIZER INC-2014156964

PATIENT
  Sex: Male

DRUGS (2)
  1. LYRICA [Suspect]
     Indication: NEUROPATHY PERIPHERAL
     Dosage: 2 DF, DAILY
  2. LYRICA [Suspect]
     Indication: PAIN
     Dosage: 1 DF, DAILY

REACTIONS (1)
  - Vision blurred [Unknown]
